FAERS Safety Report 25706020 (Version 1)
Quarter: 2025Q3

REPORT INFORMATION
  Report Type: Spontaneous
  Country: US (occurrence: US)
  Receive Date: 20250820
  Receipt Date: 20250820
  Transmission Date: 20251020
  Serious: Yes (Life-Threatening, Hospitalization, Other)
  Sender: SANDOZ
  Company Number: US-002147023-PHHY2017US121154

PATIENT
  Age: 81 Year
  Sex: Female

DRUGS (3)
  1. AZATHIOPRINE [Suspect]
     Active Substance: AZATHIOPRINE
     Indication: Lichen planus
     Route: 065
  2. MYCOPHENOLIC ACID [Suspect]
     Active Substance: MYCOPHENOLIC ACID
     Indication: Lichen planus
     Route: 065
  3. PREDNISONE [Suspect]
     Active Substance: PREDNISONE
     Indication: Lichen planus
     Route: 065

REACTIONS (5)
  - Treatment failure [Unknown]
  - Stridor [Recovering/Resolving]
  - Laryngeal stenosis [Recovering/Resolving]
  - Disease progression [Recovering/Resolving]
  - Product use in unapproved indication [Unknown]
